FAERS Safety Report 8267149-7 (Version None)
Quarter: 2012Q2

REPORT INFORMATION
  Report Type: 
  Country: None (occurrence: None)
  Receive Date: 20120409
  Receipt Date: 20120328
  Transmission Date: 20120825
  Serious: Yes (Hospitalization)
  Sender: FDA-Public Use
  Company Number: IT-JNJFOC-20120400296

PATIENT
  Sex: Male
  Weight: 27.2 kg

DRUGS (4)
  1. INFLIXIMAB, RECOMBINANT [Suspect]
     Indication: CROHN'S DISEASE
     Route: 065
     Dates: start: 20120308
  2. MESALAMINE [Concomitant]
     Indication: CROHN'S DISEASE
     Route: 054
  3. INFLIXIMAB, RECOMBINANT [Suspect]
     Route: 065
     Dates: start: 20110405
  4. ANTIBIOTIC, UNSPECIFIED [Concomitant]
     Indication: CROHN'S DISEASE

REACTIONS (1)
  - CROHN'S DISEASE [None]
